APPROVED DRUG PRODUCT: COREG CR
Active Ingredient: CARVEDILOL PHOSPHATE
Strength: 10MG
Dosage Form/Route: CAPSULE, EXTENDED RELEASE;ORAL
Application: N022012 | Product #001 | TE Code: AB
Applicant: WAYLIS THERAPEUTICS LLC
Approved: Oct 20, 2006 | RLD: Yes | RS: No | Type: RX

PATENTS:
Patent 8101209 | Expires: Sep 11, 2025
Patent 8101209*PED | Expires: Mar 11, 2026